FAERS Safety Report 9929248 (Version 1)
Quarter: 2014Q1

REPORT INFORMATION
  Report Type: Spontaneous
  Country: CO (occurrence: CO)
  Receive Date: 20140227
  Receipt Date: 20140227
  Transmission Date: 20141002
  Serious: Yes (Death)
  Sender: FDA-Public Use
  Company Number: CO-PFIZER INC-2014056730

PATIENT
  Age: 86 Year
  Sex: Male

DRUGS (1)
  1. CARDURAN [Suspect]
     Indication: DEMENTIA ALZHEIMER^S TYPE
     Dosage: 2 MG, 1X/DAY
     Route: 048
     Dates: start: 2004

REACTIONS (2)
  - Myocardial infarction [Fatal]
  - Off label use [Unknown]
